APPROVED DRUG PRODUCT: RAMELTEON
Active Ingredient: RAMELTEON
Strength: 8MG
Dosage Form/Route: TABLET;ORAL
Application: A091693 | Product #001 | TE Code: AB
Applicant: DR REDDYS LABORATORIES SA
Approved: Jul 26, 2013 | RLD: No | RS: No | Type: RX